FAERS Safety Report 6411127-7 (Version None)
Quarter: 2009Q4

REPORT INFORMATION
  Report Type: 
  Country: None (occurrence: None)
  Receive Date: 20091022
  Receipt Date: 20091015
  Transmission Date: 20100525
  Serious: Yes (Other)
  Sender: FDA-Public Use
  Company Number: FR-PFIZER INC-2009284840

PATIENT
  Age: 25 Year

DRUGS (2)
  1. SOLU-MEDROL [Suspect]
     Indication: OPTIC NEURITIS
     Dosage: UNK
     Dates: start: 20080901
  2. RISPERDAL [Interacting]
     Indication: BIPOLAR I DISORDER

REACTIONS (2)
  - PANIC ATTACK [None]
  - SELF INJURIOUS BEHAVIOUR [None]
